FAERS Safety Report 10949340 (Version 3)
Quarter: 2015Q2

REPORT INFORMATION
  Report Type: Other
  Country: IT (occurrence: IT)
  Receive Date: 20150324
  Receipt Date: 20150423
  Transmission Date: 20150821
  Serious: Yes (Death, Hospitalization)
  Sender: FDA-Public Use
  Company Number: IT-MYLANLABS-2015M1008901

PATIENT

DRUGS (4)
  1. PACLITAXEL MYLAN GENERICS 6 MG/ML [Suspect]
     Active Substance: PACLITAXEL
     Indication: GASTRIC NEOPLASM
     Dosage: 150.4 MG CYCLICAL
     Route: 042
     Dates: start: 20150203, end: 20150217
  2. SEQUACOR [Concomitant]
     Active Substance: BISOPROLOL
     Indication: HYPERTENSION
     Route: 065
  3. ZYLORIC [Concomitant]
     Active Substance: ALLOPURINOL
     Indication: PRODUCT USED FOR UNKNOWN INDICATION
     Dosage: 1 DF, QD
  4. RAMUCIRUMAB [Suspect]
     Active Substance: RAMUCIRUMAB
     Indication: GASTRIC NEOPLASM
     Dosage: 560 MG CYCLICAL
     Route: 042
     Dates: start: 20150203, end: 20150217

REACTIONS (6)
  - Feeding disorder [Fatal]
  - Disease progression [Fatal]
  - Hypotension [Fatal]
  - General physical health deterioration [Fatal]
  - Vomiting [Fatal]
  - Gastric neoplasm [Fatal]

NARRATIVE: CASE EVENT DATE: 20150304
